FAERS Safety Report 12475528 (Version 1)
Quarter: 2016Q2

REPORT INFORMATION
  Report Type: Spontaneous
  Country: CA (occurrence: CA)
  Receive Date: 20160617
  Receipt Date: 20160617
  Transmission Date: 20160815
  Serious: Yes (Other)
  Sender: FDA-Public Use
  Company Number: CA-ASTRAZENECA-2016SE62253

PATIENT
  Age: 90 Year
  Sex: Female
  Weight: 35 kg

DRUGS (16)
  1. HYPROMELLOSE [Suspect]
     Active Substance: HYPROMELLOSES
     Route: 047
  2. ACETAMINOPHEN. [Concomitant]
     Active Substance: ACETAMINOPHEN
     Dosage: 1.0DF UNKNOWN
     Route: 048
  3. HYDROMORPHONE [Concomitant]
     Active Substance: HYDROMORPHONE
     Dosage: 1.0DF UNKNOWN
  4. ONDANSETRON [Concomitant]
     Active Substance: ONDANSETRON
     Dosage: 1.0DF UNKNOWN
  5. BETA CAROTENE/CALCIUM CARBONATE/CALCIUM D PANTOTHENATE/CHROMIC CHLO... [Concomitant]
  6. ASA [Concomitant]
     Active Substance: ASPIRIN
     Dosage: 1.0DF UNKNOWN
  7. HYDROCORTISONE. [Concomitant]
     Active Substance: HYDROCORTISONE
     Dosage: 1.0DF UNKNOWN
  8. MACROGOL/POTASSIUM CHLORIDE/SODIUM BICARBONATE/SODIUM CHLORIDE/SODI... [Concomitant]
     Dosage: 1.0DF UNKNOWN
  9. SENNOSIDES. [Concomitant]
     Active Substance: SENNOSIDES
     Dosage: 1.0DF UNKNOWN
  10. FRAGMIN [Concomitant]
     Active Substance: DALTEPARIN SODIUM
     Dosage: 1.0DF UNKNOWN
     Route: 042
  11. FUSIDIC ACID [Concomitant]
     Active Substance: FUSIDIC ACID
     Dosage: 1.0DF UNKNOWN
  12. DEXAMETHASONE. [Concomitant]
     Active Substance: DEXAMETHASONE
     Dosage: 1.0DF UNKNOWN
  13. IRESSA [Suspect]
     Active Substance: GEFITINIB
     Indication: LUNG NEOPLASM MALIGNANT
     Route: 048
  14. PANTOPRAZOLE [Concomitant]
     Active Substance: PANTOPRAZOLE SODIUM
     Dosage: 1.0DF UNKNOWN
  15. RISEDRONATE SODIUM. [Concomitant]
     Active Substance: RISEDRONATE SODIUM
     Dosage: 1.0DF UNKNOWN
  16. TRAZODONE [Concomitant]
     Active Substance: TRAZODONE HYDROCHLORIDE
     Dosage: 1.0DF UNKNOWN

REACTIONS (1)
  - Candida infection [Unknown]
